FAERS Safety Report 5072159-7 (Version None)
Quarter: 2006Q3

REPORT INFORMATION
  Report Type: 
  Country: None (occurrence: None)
  Receive Date: 20060807
  Receipt Date: 20060424
  Transmission Date: 20061208
  Serious: Yes (Hospitalization, Other)
  Sender: FDA-Public Use
  Company Number: PHEH2006US05389

PATIENT
  Age: 75 Year
  Sex: Female
  Weight: 67.12 kg

DRUGS (1)
  1. EXJADE [Suspect]
     Indication: SERUM FERRITIN INCREASED
     Dosage: 1250 MG, QD
     Dates: start: 20060314, end: 20060405

REACTIONS (43)
  - ABDOMINAL PAIN [None]
  - AMMONIA INCREASED [None]
  - ASCITES [None]
  - ASTHENIA [None]
  - ATELECTASIS [None]
  - BILIARY CIRRHOSIS [None]
  - BLOOD CREATININE INCREASED [None]
  - BLOOD UREA INCREASED [None]
  - BLOOD URINE PRESENT [None]
  - CARDIAC FAILURE CONGESTIVE [None]
  - CHOLECYSTITIS [None]
  - CLOSTRIDIUM DIFFICILE TOXIN TEST POSITIVE [None]
  - CONFUSIONAL STATE [None]
  - COUGH [None]
  - DEHYDRATION [None]
  - DIARRHOEA [None]
  - DUODENITIS [None]
  - DYSPHAGIA [None]
  - DYSPNOEA [None]
  - DYSPNOEA EXERTIONAL [None]
  - DYSURIA [None]
  - GASTRITIS [None]
  - GASTROINTESTINAL HAEMORRHAGE [None]
  - HAEMOGLOBIN DECREASED [None]
  - HYPERVOLAEMIA [None]
  - HYPOAESTHESIA [None]
  - INSOMNIA [None]
  - MELAENA [None]
  - OEDEMA PERIPHERAL [None]
  - OESOPHAGITIS [None]
  - PARAESTHESIA [None]
  - PLEURAL EFFUSION [None]
  - PROTEIN URINE [None]
  - PULMONARY HYPERTENSION [None]
  - RALES [None]
  - RENAL FAILURE ACUTE [None]
  - RESPIRATORY FAILURE [None]
  - RESPIRATORY TRACT INFECTION [None]
  - SPUTUM PURULENT [None]
  - URINARY TRACT INFECTION ENTEROCOCCAL [None]
  - URINE OUTPUT DECREASED [None]
  - VISION BLURRED [None]
  - VOMITING [None]
